FAERS Safety Report 7023938-8 (Version None)
Quarter: 2010Q4

REPORT INFORMATION
  Report Type: 
  Country: None (occurrence: None)
  Receive Date: 20101001
  Receipt Date: 20100922
  Transmission Date: 20110411
  Serious: Yes (Death)
  Sender: FDA-Public Use
  Company Number: US-JNJFOC-20100700559

PATIENT
  Sex: Male

DRUGS (5)
  1. REMICADE [Suspect]
     Indication: RHEUMATOID ARTHRITIS
     Route: 042
  2. OXYCONTIN [Concomitant]
  3. PERCOCET [Concomitant]
  4. ARTHRITIC PAIN MEDICINE [Concomitant]
  5. INHALER (NOS) [Concomitant]

REACTIONS (1)
  - MYOCARDIAL INFARCTION [None]
